FAERS Safety Report 13000554 (Version 1)
Quarter: 2016Q4

REPORT INFORMATION
  Report Type: Report from Study
  Country: CA (occurrence: CA)
  Receive Date: 20161206
  Receipt Date: 20161206
  Transmission Date: 20170207
  Serious: Yes (Other)
  Sender: FDA-Public Use
  Company Number: CA-AMGEN-CANSL2016169845

PATIENT
  Age: 18 Year
  Sex: Female

DRUGS (7)
  1. ALESSE 28 [Concomitant]
     Active Substance: ETHINYL ESTRADIOL\LEVONORGESTREL
     Dosage: 100-20 MCG PER TABLET TAKE 1 TABLET BY MOUTH DAILY
     Route: 048
  2. PROZAC [Concomitant]
     Active Substance: FLUOXETINE HYDROCHLORIDE
     Dosage: 40 MG, BY MOUTH DAILY
     Route: 048
  3. ENBREL [Suspect]
     Active Substance: ETANERCEPT
     Indication: PSORIATIC ARTHROPATHY
  4. CIPRALEX [Concomitant]
     Active Substance: ESCITALOPRAM OXALATE
     Dosage: 10 MG, BY MOUTH DAILY
     Route: 048
  5. MTX [Concomitant]
     Active Substance: METHOTREXATE SODIUM
     Dosage: UNK
     Route: 058
  6. ENBREL [Suspect]
     Active Substance: ETANERCEPT
     Indication: JUVENILE IDIOPATHIC ARTHRITIS
     Dosage: 25 MG, 2 TIMES/WK
     Route: 058
     Dates: start: 20020701
  7. MTX [Concomitant]
     Active Substance: METHOTREXATE SODIUM
     Dosage: UNK
     Route: 048

REACTIONS (14)
  - Psoriasis [Unknown]
  - Joint swelling [Unknown]
  - Nail pitting [Unknown]
  - Nail disorder [Unknown]
  - Osteopenia [Unknown]
  - Wrist deformity [Unknown]
  - Joint effusion [Not Recovered/Not Resolved]
  - Exostosis [Unknown]
  - Uveitis [Unknown]
  - Fatigue [Unknown]
  - Joint dislocation [Unknown]
  - Bone erosion [Unknown]
  - Rectal haemorrhage [Unknown]
  - Disease progression [Unknown]
